FAERS Safety Report 10067200 (Version 1)
Quarter: 2014Q2

REPORT INFORMATION
  Report Type: Spontaneous
  Country: US (occurrence: US)
  Receive Date: 20140409
  Receipt Date: 20140409
  Transmission Date: 20141212
  Serious: No
  Sender: FDA-Public Use
  Company Number: US-B.I. PHARMACEUTICALS,INC./RIDGEFIELD-2014-BI-13638BP

PATIENT
  Age: 76 Year
  Sex: Female
  Weight: 54 kg

DRUGS (8)
  1. ZANTAC (RANITIDINE HYDROCHLORIDE) [Suspect]
     Indication: CHEST PAIN
     Dosage: 300 MG
     Route: 048
  2. ZANTAC (RANITIDINE HYDROCHLORIDE) [Suspect]
     Indication: GASTROOESOPHAGEAL REFLUX DISEASE
  3. MIRTAZAPINE [Concomitant]
     Indication: ANTIDEPRESSANT THERAPY
     Dosage: 15 MG
     Route: 048
  4. RANITIDINE [Concomitant]
     Indication: CHEST PAIN
     Dosage: 150 MG
     Route: 048
     Dates: end: 201403
  5. RANITIDINE [Concomitant]
     Indication: GASTROOESOPHAGEAL REFLUX DISEASE
  6. OMEPRAZOLE [Concomitant]
     Route: 048
     Dates: end: 201403
  7. LEVOTHYROXIN [Concomitant]
     Indication: HYPOTHYROIDISM
     Dosage: 100 MCG
     Route: 048
  8. DIGALPROEX [Concomitant]
     Indication: BIPOLAR DISORDER
     Dosage: 125 MG
     Route: 048

REACTIONS (1)
  - Off label use [Not Recovered/Not Resolved]
